FAERS Safety Report 12325519 (Version 1)
Quarter: 2016Q2

REPORT INFORMATION
  Report Type: Spontaneous
  Country: DE (occurrence: DE)
  Receive Date: 20160502
  Receipt Date: 20160502
  Transmission Date: 20160815
  Serious: No
  Sender: FDA-Public Use
  Company Number: DE-LUPIN PHARMACEUTICALS INC.-2016-01139

PATIENT
  Sex: Male

DRUGS (1)
  1. QUETIAPIN-HORMOSAN 50 MG PROLONGED-RELEASE TABLETS [Suspect]
     Active Substance: QUETIAPINE FUMARATE
     Indication: RESTLESSNESS
     Route: 048

REACTIONS (4)
  - Incorrect dose administered [Unknown]
  - Product use issue [Unknown]
  - Dysphagia [Unknown]
  - Wrong technique in product usage process [Unknown]
